FAERS Safety Report 7733542-1 (Version None)
Quarter: 2011Q3

REPORT INFORMATION
  Report Type: 
  Country: None (occurrence: None)
  Receive Date: 20110901
  Receipt Date: 20110818
  Transmission Date: 20111222
  Serious: Yes (Hospitalization)
  Sender: FDA-Public Use
  Company Number: 1000023159

PATIENT
  Age: 21 Year
  Sex: Female

DRUGS (4)
  1. TARDYFERON (FERROUS SULFATE) (FERROUS SULFATE) [Concomitant]
  2. DEPAKOTE [Suspect]
     Dates: start: 20110810
  3. ESCITALOPRAM [Suspect]
     Dosage: ORAL
     Route: 048
     Dates: start: 20110701
  4. TRINORDIOL (LEVONORGESTREL, ETHINYLESTRADIOL) - (LEVONOGESTREL, ETHINY [Concomitant]

REACTIONS (8)
  - RHINITIS [None]
  - PYREXIA [None]
  - VOMITING [None]
  - ACUTE RESPIRATORY DISTRESS SYNDROME [None]
  - DYSPNOEA [None]
  - DIARRHOEA [None]
  - LUNG DISORDER [None]
  - HYPOXIA [None]
